FAERS Safety Report 8258276-9 (Version None)
Quarter: 2012Q2

REPORT INFORMATION
  Report Type: 
  Country: None (occurrence: None)
  Receive Date: 20120404
  Receipt Date: 20120402
  Transmission Date: 20120825
  Serious: Yes (Other)
  Sender: FDA-Public Use
  Company Number: US-SANOFI-AVENTIS-2012SA019297

PATIENT
  Age: 84 Year
  Sex: Male
  Weight: 73 kg

DRUGS (5)
  1. PLAVIX [Suspect]
     Indication: STENT PLACEMENT
     Route: 048
     Dates: start: 20090101
  2. ATORVASTATIN [Concomitant]
  3. LISINOPRIL [Concomitant]
  4. PLAVIX [Suspect]
     Route: 048
  5. METOPROLOL SUCCINATE [Concomitant]

REACTIONS (7)
  - HYPOPHAGIA [None]
  - BARRETT'S OESOPHAGUS [None]
  - BURNING SENSATION [None]
  - GASTROINTESTINAL PAIN [None]
  - VASCULAR OCCLUSION [None]
  - GASTROOESOPHAGEAL REFLUX DISEASE [None]
  - WEIGHT DECREASED [None]
